FAERS Safety Report 23407902 (Version 11)
Quarter: 2024Q3

REPORT INFORMATION
  Report Type: Report from Study
  Country: PT (occurrence: PT)
  Receive Date: 20240117
  Receipt Date: 20240724
  Transmission Date: 20241017
  Serious: Yes (Hospitalization, Other)
  Sender: ABBVIE
  Company Number: PT-ABBVIE-5588845

PATIENT
  Age: 79 Year
  Sex: Male

DRUGS (20)
  1. CARBIDOPA\LEVODOPA [Suspect]
     Active Substance: CARBIDOPA\LEVODOPA
     Indication: Parkinson^s disease
     Dosage: 20 MG + 5 MG, MORN:7.3CC;MAIN:4.3CC/H;EXTRA:1CC?LAST ADMIN DATE 2023
     Route: 050
     Dates: start: 20230621
  2. CARBIDOPA\LEVODOPA [Suspect]
     Active Substance: CARBIDOPA\LEVODOPA
     Dosage: 20 MG + 5 MG, FIRST ADMIN DATE 2023?MORN:1.6CC;MAIN:5.8CC/H;EXTR:6.2CC; FIRST ADMIN DATE :2023
     Route: 050
     Dates: end: 20230921
  3. CARBIDOPA\LEVODOPA [Suspect]
     Active Substance: CARBIDOPA\LEVODOPA
     Dosage: 20 MG + 5 MG; MORN:16.5CC;MAIN:6.4CC/H;EXTR:6CC
     Route: 050
     Dates: start: 20240718
  4. CARBIDOPA\LEVODOPA [Suspect]
     Active Substance: CARBIDOPA\LEVODOPA
     Dosage: 20 MG + 5 MG (GASTRIC); MORN:16CC;MAIN:5.8CC/H;EXTR:6.2CC
     Route: 050
     Dates: start: 20230921, end: 20240226
  5. CARBIDOPA\LEVODOPA [Suspect]
     Active Substance: CARBIDOPA\LEVODOPA
     Dosage: 20 MG + 5 MG (GASTRIC); MORN:16CC;MAIN:5.8CC/H;EXTR:6.2CC
     Route: 050
     Dates: start: 20240226, end: 20240402
  6. CARBIDOPA\LEVODOPA [Suspect]
     Active Substance: CARBIDOPA\LEVODOPA
     Dosage: 20 MG + 5 MG (GASTRIC); MORN:16.5CC;MAIN:6.1CC/H;EXTR:7.7CC
     Route: 050
     Dates: start: 20240402, end: 20240718
  7. FLUOXETINE [Concomitant]
     Active Substance: FLUOXETINE HYDROCHLORIDE
     Indication: Product used for unknown indication
     Dosage: AT BREAKFAST, EVERY OTHER DAY,?FORM STRENGTH: STRENGTH 20 MILLIGRAMS?START DATE: BEFORE DUODOPA
  8. RAMIPRIL [Concomitant]
     Active Substance: RAMIPRIL
     Indication: Product used for unknown indication
     Dosage: 1 TABLET, FORM STRENGTH: 5 MILLIGRAM, ?START DATE: BEFORE DUODOPA , AT BREAKFAST,
  9. SIMVASTATIN [Concomitant]
     Active Substance: SIMVASTATIN
     Indication: Product used for unknown indication
     Dosage: 1 TABLET, AT BEDTIME ? FORM STRENGTH: 20 MILLIGRAMS,?START DATE: BEFORE DUODOPA
     Route: 048
  10. EDOXABAN TOSYLATE [Concomitant]
     Active Substance: EDOXABAN TOSYLATE
     Indication: Product used for unknown indication
     Dosage: 1 TABLET?FORM STRENGTH: 60 MILLIGRAM?START DATE : BEFORE DUODOPA
  11. NEUROBION [Concomitant]
     Active Substance: CYANOCOBALAMIN\PYRIDOXINE\THIAMINE
     Indication: Product used for unknown indication
     Dosage: 1 TABLET, ?START DATE: BEFORE DUODOPA
  12. FOLIC ACID [Concomitant]
     Active Substance: FOLIC ACID
     Indication: Product used for unknown indication
     Dosage: START DATE: BEFORE DUODOPA, STRENGTH 5 MILLIGRAMS, 1 TABLET AT LUNCH ON SATURDAYS + SUNDAYS
  13. DUTASTERIDE\TAMSULOSIN HYDROCHLORIDE [Concomitant]
     Active Substance: DUTASTERIDE\TAMSULOSIN HYDROCHLORIDE
     Indication: Product used for unknown indication
     Dosage: 5 MG + 4 MG?1 TABLET AT LUNCH ?START DATE: BEFORE DUODOPA
  14. SINEMET CR [Concomitant]
     Active Substance: CARBIDOPA\LEVODOPA
     Indication: Product used for unknown indication
     Dosage: 1 TABLET, AT BEDTIME, 200/50?START DATE: BEFORE DUODOPA,
  15. AMANTADINE HYDROCHLORIDE [Concomitant]
     Active Substance: AMANTADINE HYDROCHLORIDE
     Indication: Product used for unknown indication
     Dosage: 1 TABLET, ?FORM STRENGTH: 100 MILLIGRAMS,  AT BREAKFAST ?START DATE: BEFORE DUODOPA, STOP- UPON D...
  16. MEMANTINE [Concomitant]
     Active Substance: MEMANTINE
     Indication: Product used for unknown indication
     Dosage: 2 TABLET, FORM STRENGTH: 10 MILLIGRAMS, AT BREAKFAST AND AT DINNER ?START DATE: BEFORE DUODOPA
  17. MIRABEGRON [Concomitant]
     Active Substance: MIRABEGRON
     Indication: Product used for unknown indication
     Dosage: 1 CAPSULE, 25 MILLIGRAMS, AT BREAKFAST, BEFORE DUODOPA
  18. RIVOTRIL [Concomitant]
     Active Substance: CLONAZEPAM
     Indication: Product used for unknown indication
     Dosage: 1 TABLET, 0.5 MILLIGRAMS, AT BEDTIME, ?START DATE: BEFORE DUODOPA
  19. PANTOPRAZOLE [Concomitant]
     Active Substance: PANTOPRAZOLE
     Indication: Product used for unknown indication
     Dosage: 1 TABLET, FORM STRENGTH: 20 MILLIGRAMS, AT FASTING, ?START DATE: BEFORE DUODOPA
  20. RIVASTIGMINE [Concomitant]
     Active Substance: RIVASTIGMINE
     Indication: Product used for unknown indication
     Dosage: 13,3 MG/24H,  1 PATCH DAILY, ?START DATE: BEFORE DUODOPA
     Route: 062

REACTIONS (27)
  - Gastric haemorrhage [Recovered/Resolved]
  - Abdominal pain upper [Recovered/Resolved]
  - Tachypnoea [Recovered/Resolved]
  - Productive cough [Recovered/Resolved]
  - Akinesia [Not Recovered/Not Resolved]
  - Gastrointestinal wall thickening [Not Recovered/Not Resolved]
  - Breath sounds abnormal [Recovered/Resolved]
  - Tracheobronchitis [Recovered/Resolved]
  - Abdominal distension [Recovered/Resolved]
  - Nodule [Not Recovered/Not Resolved]
  - Gait disturbance [Recovering/Resolving]
  - Flatulence [Recovered/Resolved]
  - Confusional state [Recovered/Resolved]
  - Tremor [Recovered/Resolved]
  - Oral candidiasis [Recovered/Resolved]
  - Haematocrit decreased [Unknown]
  - Pneumonia [Recovered/Resolved]
  - Blood urea increased [Unknown]
  - C-reactive protein increased [Recovered/Resolved]
  - Haemoglobin decreased [Unknown]
  - Flatulence [Recovered/Resolved]
  - Red blood cell count decreased [Unknown]
  - Body temperature increased [Recovered/Resolved]
  - Bezoar [Unknown]
  - Mass [Not Recovered/Not Resolved]
  - Duodenal ulcer [Recovered/Resolved]
  - Abdominal discomfort [Recovered/Resolved]

NARRATIVE: CASE EVENT DATE: 20240101
